FAERS Safety Report 6438669-2 (Version None)
Quarter: 2009Q4

REPORT INFORMATION
  Report Type: 
  Country: None (occurrence: None)
  Receive Date: 20091113
  Receipt Date: 20091105
  Transmission Date: 20100525
  Serious: Yes (Other)
  Sender: FDA-Public Use
  Company Number: US-ASTRAZENECA-2008UW27623

PATIENT
  Age: 8766 Day
  Sex: Male
  Weight: 163.3 kg

DRUGS (6)
  1. SEROQUEL [Suspect]
     Indication: MENTAL DISORDER
     Dosage: 25 MG - 200 MG
     Route: 048
     Dates: start: 20030923, end: 20060101
  2. SEROQUEL [Suspect]
     Indication: BIPOLAR DISORDER
     Dosage: 25 MG - 200 MG
     Route: 048
     Dates: start: 20030923, end: 20060101
  3. ABILIFY [Concomitant]
  4. GEODON [Concomitant]
  5. RISPERDAL [Concomitant]
  6. ZYPREXA [Concomitant]

REACTIONS (5)
  - DIABETES MELLITUS [None]
  - HEPATITIS C [None]
  - PAIN [None]
  - SUICIDE ATTEMPT [None]
  - VASCULAR GRAFT [None]
